FAERS Safety Report 25459380 (Version 1)
Quarter: 2025Q2

REPORT INFORMATION
  Report Type: Spontaneous
  Country: IT (occurrence: IT)
  Receive Date: 20250620
  Receipt Date: 20250620
  Transmission Date: 20250716
  Serious: Yes (Other)
  Sender: TEVA
  Company Number: IT-TEVA-VS-3340973

PATIENT
  Age: 32 Year
  Sex: Female
  Weight: 50 kg

DRUGS (4)
  1. ROSUVASTATIN [Suspect]
     Active Substance: ROSUVASTATIN
     Indication: Type IIa hyperlipidaemia
     Route: 065
  2. EZETIMIBE [Suspect]
     Active Substance: EZETIMIBE
     Indication: Type IIa hyperlipidaemia
     Route: 065
  3. INCLISIRAN SODIUM [Suspect]
     Active Substance: INCLISIRAN SODIUM
     Indication: Type IIa hyperlipidaemia
     Dosage: SECOND ADMINISTRATION AT 13 WEEKS BEFORE THE START OF GESTATION
     Route: 058
  4. FOLIC ACID [Suspect]
     Active Substance: FOLIC ACID
     Indication: Prophylaxis of neural tube defect
     Route: 065

REACTIONS (3)
  - Gestational hyperthyroidism [Unknown]
  - Maternal exposure during pregnancy [Unknown]
  - Normal newborn [Unknown]
